FAERS Safety Report 5884454-X (Version None)
Quarter: 2008Q3

REPORT INFORMATION
  Report Type: 
  Country: None (occurrence: None)
  Receive Date: 20080916
  Receipt Date: 20070702
  Transmission Date: 20090109
  Serious: Yes (Life-Threatening, Hospitalization)
  Sender: FDA-Public Use
  Company Number: FR-LLY01-FR200707000043

PATIENT
  Age: 32 Year
  Sex: Male
  Weight: 80 kg

DRUGS (4)
  1. ZYPREXA [Suspect]
     Indication: PSYCHOTIC DISORDER
     Dosage: 10 MG, DAILY (1/D)
     Route: 048
     Dates: start: 20030423, end: 20070514
  2. LEXOMIL [Concomitant]
     Dosage: UNK, UNKNOWN
     Route: 048
  3. LEPTICUR [Concomitant]
     Dosage: 20 MG, DAILY (1/D)
     Route: 048
  4. LOXAPINE HCL [Concomitant]
     Dosage: 100 MG, DAILY (1/D)
     Route: 048

REACTIONS (8)
  - CARDIOMYOPATHY [None]
  - DIARRHOEA [None]
  - HAEMATEMESIS [None]
  - HEPATOMEGALY [None]
  - MITRAL VALVE INCOMPETENCE [None]
  - PULMONARY EMBOLISM [None]
  - PULMONARY INFARCTION [None]
  - TRICUSPID VALVE INCOMPETENCE [None]
